FAERS Safety Report 9124443 (Version 5)
Quarter: 2013Q2

REPORT INFORMATION
  Report Type: Spontaneous
  Country: FR (occurrence: FR)
  Receive Date: 20130116
  Receipt Date: 20130607
  Transmission Date: 20140414
  Serious: Yes (Life-Threatening)
  Sender: FDA-Public Use
  Company Number: FR-JNJFOC-20130102578

PATIENT
  Age: 65 Year
  Sex: Male

DRUGS (2)
  1. RISPERDAL [Suspect]
     Indication: PSYCHOTIC DISORDER
     Route: 048
     Dates: start: 201211, end: 20121224
  2. RISPERDAL [Suspect]
     Indication: PSYCHOTIC DISORDER
     Dosage: 1 MG IN THE MORNING, 2 MG IN THE EVENING
     Route: 048
     Dates: start: 20121126

REACTIONS (14)
  - Mutism [Unknown]
  - Pneumonia aspiration [Recovered/Resolved]
  - Atelectasis [Recovered/Resolved]
  - Respiratory acidosis [Unknown]
  - Deep vein thrombosis [Recovered/Resolved]
  - Confusional state [Unknown]
  - Hypernatraemia [Unknown]
  - Fall [Unknown]
  - Hemiparesis [Unknown]
  - Respiratory distress [Unknown]
  - Abnormal behaviour [Recovered/Resolved]
  - Drooling [Recovered/Resolved]
  - Extrapyramidal disorder [Recovered/Resolved]
  - Neuroleptic malignant syndrome [Unknown]
